FAERS Safety Report 9009278 (Version 1)
Quarter: 2013Q1

REPORT INFORMATION
  Report Type: Spontaneous
  Country: HR (occurrence: HR)
  Receive Date: 20130111
  Receipt Date: 20130111
  Transmission Date: 20140127
  Serious: Yes (Hospitalization)
  Sender: FDA-Public Use
  Company Number: HR-GLAXOSMITHKLINE-B0857718A

PATIENT
  Age: 63 Year
  Sex: Female
  Weight: 60 kg

DRUGS (8)
  1. IMIGRAN [Suspect]
     Indication: MIGRAINE
     Dosage: 50MG PER DAY
     Route: 048
     Dates: start: 20120609, end: 20120614
  2. PARACETAMOL [Suspect]
     Indication: HEADACHE
     Dosage: 4TAB PER DAY
     Route: 048
     Dates: start: 20120609, end: 20120614
  3. EUTHYROX [Concomitant]
     Indication: HYPOTHYROIDISM
     Dosage: 100MCG PER DAY
     Route: 048
     Dates: start: 201111
  4. TEGRETOL [Concomitant]
     Dosage: 400MG PER DAY
     Route: 048
  5. PEPTORAN [Concomitant]
     Indication: HYPERCHLORHYDRIA
     Dosage: 2TAB PER DAY
     Route: 048
     Dates: start: 2004
  6. FEVARIN [Concomitant]
     Indication: DEPRESSION
     Dosage: 100MG PER DAY
     Route: 048
     Dates: start: 2006
  7. FOLACIN [Concomitant]
     Indication: FOLATE DEFICIENCY
     Dosage: 5MG PER DAY
     Route: 048
     Dates: start: 201111
  8. CALCIUM CARBONATE [Concomitant]
     Indication: OSTEOPOROSIS
     Route: 048
     Dates: start: 2006

REACTIONS (2)
  - Dyspnoea [Recovered/Resolved]
  - Pulmonary embolism [Recovered/Resolved]
